FAERS Safety Report 14254260 (Version 7)
Quarter: 2018Q4

REPORT INFORMATION
  Report Type: Spontaneous
  Country: JP (occurrence: JP)
  Receive Date: 20171206
  Receipt Date: 20181214
  Transmission Date: 20190204
  Serious: Yes (Death, Hospitalization)
  Sender: FDA-Public Use
  Company Number: JP-009507513-1708JPN001243J

PATIENT
  Age: 68 Year
  Sex: Male
  Weight: 41 kg

DRUGS (5)
  1. KEYTRUDA [Suspect]
     Active Substance: PEMBROLIZUMAB
     Indication: LUNG ADENOCARCINOMA
     Dosage: 200 MG, Q3W
     Route: 041
     Dates: start: 20170623, end: 20170724
  2. BELSOMRA [Concomitant]
     Active Substance: SUVOREXANT
     Dosage: 1 DF, QD
     Route: 048
  3. LYRICA [Concomitant]
     Active Substance: PREGABALIN
     Indication: PAIN
     Dosage: 2 DF, BID
     Route: 048
  4. ROZEREM [Concomitant]
     Active Substance: RAMELTEON
     Dosage: 1 DF, QD
     Route: 048
  5. TRAMAL [Concomitant]
     Active Substance: TRAMADOL
     Indication: PAIN
     Dosage: 4 DF, QD
     Route: 048

REACTIONS (6)
  - Pneumonitis [Not Recovered/Not Resolved]
  - Hepatic function abnormal [Recovering/Resolving]
  - Rash [Not Recovered/Not Resolved]
  - Dermatitis [Not Recovered/Not Resolved]
  - Condition aggravated [Fatal]
  - Overdose [Unknown]

NARRATIVE: CASE EVENT DATE: 2017
